FAERS Safety Report 14283107 (Version 3)
Quarter: 2018Q1

REPORT INFORMATION
  Report Type: Spontaneous
  Country: US (occurrence: US)
  Receive Date: 20171213
  Receipt Date: 20180214
  Transmission Date: 20180508
  Serious: Yes (Death)
  Sender: FDA-Public Use
  Company Number: US-PFIZER INC-2017456736

PATIENT
  Age: 84 Year
  Sex: Male
  Weight: 50.79 kg

DRUGS (25)
  1. CRIZOTINIB [Concomitant]
     Active Substance: CRIZOTINIB
     Dosage: 250 MG, 2X/DAY
     Route: 048
     Dates: start: 20171014
  2. DIAZEPAM. [Concomitant]
     Active Substance: DIAZEPAM
     Dosage: 1 MG/ML, AS NEEDED(Q DAY)
     Route: 048
     Dates: start: 20171019
  3. DOXAZOSIN [Concomitant]
     Active Substance: DOXAZOSIN\DOXAZOSIN MESYLATE
     Dosage: 4 MG, UNK( 1 TAB AT NIGHT)
     Dates: start: 20170809
  4. LIDOCAINE AND PRILOCAINE [Concomitant]
     Active Substance: LIDOCAINE\PRILOCAINE
     Dosage: UNK, LIDOCAINE 2.5%/PRILOCAINE 2.5% (APPLY TO PORT SITE 45 MINUTES PRIOR TO CHEMOTHERAPY)
     Route: 061
     Dates: start: 20171013
  5. VALTREX [Concomitant]
     Active Substance: VALACYCLOVIR HYDROCHLORIDE
     Dosage: 1 G, 3X/DAY(10 DAYS)
     Route: 048
     Dates: start: 20171010
  6. VITAMIN D3 [Concomitant]
     Active Substance: CHOLECALCIFEROL
     Dosage: 1000 IU, 1X/DAY(Q.DAY)
     Route: 048
     Dates: start: 20170809
  7. ZOLOFT [Concomitant]
     Active Substance: SERTRALINE HYDROCHLORIDE
     Dosage: 75 MG, 1X/DAY (1 1/2 TABLET)
     Route: 048
  8. MELATONIN [Concomitant]
     Active Substance: MELATONIN
     Dosage: 5 MG, 1X/DAY (1 CAP AT BEDTIME)
     Dates: start: 20170809
  9. SERTRALINE HCL [Concomitant]
     Active Substance: SERTRALINE HYDROCHLORIDE
     Dosage: 75 MG, 1X/DAY(Q. DAY)
     Route: 048
     Dates: start: 20170809
  10. LEVOTHYROXIN [Concomitant]
     Active Substance: LEVOTHYROXINE
     Dosage: 112 UG, 1X/DAY(Q.DAY)
     Route: 048
     Dates: start: 20170809
  11. CIPRO [Concomitant]
     Active Substance: CIPROFLOXACIN HYDROCHLORIDE
     Dosage: 500 MG, 2X/DAY
     Route: 048
     Dates: start: 20171012
  12. DICYCLOMINE [Concomitant]
     Active Substance: DICYCLOMINE HYDROCHLORIDE
     Dosage: 10 MG, 3X/DAY
     Dates: start: 20170809
  13. XALKORI [Suspect]
     Active Substance: CRIZOTINIB
     Indication: NON-SMALL CELL LUNG CANCER STAGE IV
     Dosage: 250 MG, 2X/DAY(BID)
     Route: 048
     Dates: start: 20171030, end: 20171102
  14. BACTRIM DS [Concomitant]
     Active Substance: SULFAMETHOXAZOLE\TRIMETHOPRIM
     Dosage: 1 DF, UNK (SULFAMETHOXAZOLE 800 MG/TRIMETHOPRIM 160 MG, 1 PO BID Q WEDNESDAY, THURSDAY AND FRIDAY)
     Route: 048
     Dates: start: 20170926
  15. BACTRIM DS [Concomitant]
     Active Substance: SULFAMETHOXAZOLE\TRIMETHOPRIM
     Dosage: 1 DF, 2X/DAY (SULFAMETHOXAZOLE 800 MG/TRIMETHOPRIM 160 MG, 1 PO BID FOR 10 DAYS)
     Route: 048
     Dates: start: 20171012
  16. DEXAMETHASONE. [Concomitant]
     Active Substance: DEXAMETHASONE
     Dosage: 4 MG, 2X/DAY(BID)
     Route: 048
     Dates: start: 20170912
  17. OMEPRAZOLE. [Concomitant]
     Active Substance: OMEPRAZOLE
     Dosage: 40 MG, 1X/DAY(Q. DAY)
     Route: 048
     Dates: start: 20171012
  18. DEXAMETHASONE. [Concomitant]
     Active Substance: DEXAMETHASONE
     Dosage: 4 MG, 4X/DAY(Q.6 HOURS (QID))
     Route: 048
     Dates: start: 20170816
  19. DEXAMETHASONE. [Concomitant]
     Active Substance: DEXAMETHASONE
     Dosage: 4 MG, 1X/DAY(Q.DAY)
     Route: 048
  20. DIAZEPAM. [Concomitant]
     Active Substance: DIAZEPAM
     Dosage: 2.5 MG, AS NEEDED
     Route: 048
     Dates: start: 20170809
  21. DIFLUCAN [Concomitant]
     Active Substance: FLUCONAZOLE
     Dosage: 100 MG, 1X/DAY(Q. DAY)
     Route: 048
     Dates: start: 20171010
  22. FIBER [Concomitant]
     Active Substance: PSYLLIUM HUSK
     Dosage: 2 DF, DAILY (2 CAPS DAILY)
     Route: 048
     Dates: start: 20170809
  23. PRESERVISION [Concomitant]
     Active Substance: MINERALS\VITAMINS
     Dosage: 1 DF, 2X/DAY
     Dates: start: 20170809
  24. PROTONIX [Concomitant]
     Active Substance: PANTOPRAZOLE SODIUM
     Dosage: 40 MG, 1X/DAY(Q.DAY)
     Route: 048
     Dates: start: 20170816
  25. ZYKADIA [Concomitant]
     Active Substance: CERITINIB
     Dosage: 750 MG, DAILY (TAKE 5 PO 1 HOUR BEFORE OR 2 HRS AFTER MEAL SAME TIME DAILY)
     Route: 048
     Dates: start: 20170925

REACTIONS (1)
  - Neoplasm progression [Fatal]
